FAERS Safety Report 7169857-8 (Version None)
Quarter: 2010Q4

REPORT INFORMATION
  Report Type: 
  Country: None (occurrence: None)
  Receive Date: 20101217
  Receipt Date: 20101209
  Transmission Date: 20110411
  Serious: Yes (Hospitalization)
  Sender: FDA-Public Use
  Company Number: PHHY2010US84282

PATIENT
  Age: 5 Year
  Sex: Male

DRUGS (1)
  1. TOBI [Suspect]
     Indication: CYSTIC FIBROSIS
     Dosage: 300 MG 1 AMP BID VIA NEB 28 DAYS ON, 28 DAYS OFF
     Dates: start: 20080619

REACTIONS (1)
  - LUNG INFECTION [None]
